APPROVED DRUG PRODUCT: HYDRALAZINE HYDROCHLORIDE
Active Ingredient: HYDRALAZINE HYDROCHLORIDE
Strength: 25MG
Dosage Form/Route: TABLET;ORAL
Application: A088177 | Product #001
Applicant: PUREPAC PHARMACEUTICAL CO
Approved: Jul 29, 1983 | RLD: No | RS: No | Type: DISCN